FAERS Safety Report 5243429-4 (Version None)
Quarter: 2007Q1

REPORT INFORMATION
  Report Type: 
  Country: None (occurrence: None)
  Receive Date: 20070214
  Receipt Date: 20070130
  Transmission Date: 20070707
  Serious: Yes (Other)
  Sender: FDA-Public Use
  Company Number: 100#08#2007-00307

PATIENT
  Age: 52 Year
  Sex: Female

DRUGS (1)
  1. WARFARIN (WARFARIN) (WARFARIN) [Suspect]
     Indication: VENOUS THROMBOSIS
     Dosage: SEE IMAGE

REACTIONS (3)
  - DRUG INTERACTION [None]
  - DRUG RESISTANCE [None]
  - VITAMIN K INCREASED [None]
